FAERS Safety Report 7829388-6 (Version None)
Quarter: 2011Q4

REPORT INFORMATION
  Report Type: 
  Country: None (occurrence: None)
  Receive Date: 20111020
  Receipt Date: 20111012
  Transmission Date: 20120403
  Serious: Yes (Death)
  Sender: FDA-Public Use
  Company Number: US-MPIJNJ-2011-04895

PATIENT
  Sex: Female

DRUGS (3)
  1. DIPHENHYDRAMINE HCL [Concomitant]
     Indication: PROPHYLAXIS
  2. ACETAMINOPHEN [Concomitant]
     Indication: PROPHYLAXIS
  3. VELCADE [Suspect]
     Indication: IMMUNE TOLERANCE INDUCTION
     Dosage: 1.3 MG/M2, CYCLIC

REACTIONS (7)
  - PERIPHERAL SENSORY NEUROPATHY [None]
  - MULTI-ORGAN FAILURE [None]
  - ESCHERICHIA URINARY TRACT INFECTION [None]
  - ORAL CANDIDIASIS [None]
  - LEUKOPENIA [None]
  - CANDIDURIA [None]
  - SEPSIS [None]
